FAERS Safety Report 14203709 (Version 1)
Quarter: 2017Q4

REPORT INFORMATION
  Report Type: Spontaneous
  Country: US (occurrence: US)
  Receive Date: 20171120
  Receipt Date: 20171120
  Transmission Date: 20180321
  Serious: No
  Sender: FDA-Public Use
  Company Number: US-PFIZER INC-2017494986

PATIENT
  Sex: Female

DRUGS (1)
  1. IBRANCE [Suspect]
     Active Substance: PALBOCICLIB
     Indication: BREAST CANCER METASTATIC
     Dosage: 100 MG, DAILY
     Dates: start: 20170905

REACTIONS (8)
  - Stomatitis [Unknown]
  - Fatigue [Unknown]
  - Laryngitis [Unknown]
  - Dysphonia [Unknown]
  - Decreased appetite [Unknown]
  - Gingival bleeding [Unknown]
  - Dry throat [Unknown]
  - Alopecia [Unknown]
